FAERS Safety Report 7492012-9 (Version None)
Quarter: 2011Q2

REPORT INFORMATION
  Report Type: 
  Country: None (occurrence: None)
  Receive Date: 20110519
  Receipt Date: 20110510
  Transmission Date: 20111010
  Serious: Yes (Other)
  Sender: FDA-Public Use
  Company Number: US-B.I. PHARMACEUTICALS,INC./RIDGEFIELD-2011-BP-12696BP

PATIENT
  Age: 60 Year
  Sex: Male

DRUGS (4)
  1. FLOMAX [Suspect]
     Indication: PROSTATOMEGALY
  2. AVODART [Suspect]
     Indication: PROSTATOMEGALY
  3. FLOMAX [Suspect]
     Indication: BENIGN PROSTATIC HYPERPLASIA
  4. AVODART [Suspect]
     Indication: BENIGN PROSTATIC HYPERPLASIA

REACTIONS (4)
  - HAEMORRHAGE [None]
  - CALCULUS URINARY [None]
  - BLOOD URINE PRESENT [None]
  - DRUG INEFFECTIVE [None]
